FAERS Safety Report 16362612 (Version 1)
Quarter: 2019Q2

REPORT INFORMATION
  Report Type: Spontaneous
  Country: IT (occurrence: IT)
  Receive Date: 20190528
  Receipt Date: 20190528
  Transmission Date: 20190711
  Serious: Yes (Hospitalization)
  Sender: FDA-Public Use
  Company Number: IT-MYLANLABS-2019M1049091

PATIENT
  Age: 80 Year
  Sex: Male

DRUGS (8)
  1. LEXOTAN [Concomitant]
     Active Substance: BROMAZEPAM
     Dosage: UNK
  2. VALSARTAN AND HYDROCHLOROTHIAZIDE [Concomitant]
     Active Substance: HYDROCHLOROTHIAZIDE\VALSARTAN
     Dosage: UNK
  3. PARIET [Concomitant]
     Active Substance: RABEPRAZOLE SODIUM
     Dosage: UNK
  4. LOVINACOR [Concomitant]
     Active Substance: LOVASTATIN
     Dosage: 40 MILLIGRAM
     Route: 048
  5. CLOPIDOGREL [Suspect]
     Active Substance: CLOPIDOGREL BISULFATE
     Indication: PERIPHERAL ARTERIAL OCCLUSIVE DISEASE
     Dosage: 75 MILLIGRAM, QD
     Route: 048
     Dates: start: 20180916, end: 20180928
  6. HALCION [Concomitant]
     Active Substance: TRIAZOLAM
     Dosage: UNK
  7. ACETYLSALICYLIC ACID [Concomitant]
     Active Substance: ASPIRIN
     Dosage: UNK
  8. ISOPTIN [Concomitant]
     Active Substance: VERAPAMIL HYDROCHLORIDE
     Dosage: UNK

REACTIONS (3)
  - Leukopenia [Unknown]
  - Oral fungal infection [Unknown]
  - Pseudomonal sepsis [Unknown]

NARRATIVE: CASE EVENT DATE: 20180920
